FAERS Safety Report 4848895-1 (Version None)
Quarter: 2005Q4

REPORT INFORMATION
  Report Type: 
  Country: None (occurrence: None)
  Receive Date: 20051121
  Receipt Date: 20051012
  Transmission Date: 20060501
  Serious: Yes (Hospitalization)
  Sender: FDA-Public Use
  Company Number: 05P-163-0313496-00

PATIENT
  Age: 46 Year
  Sex: Female
  Weight: 83.4619 kg

DRUGS (8)
  1. DEPAKOTE ER [Suspect]
     Indication: CONVULSION
     Dosage: 1000 MG, 1 IN 1 D, PER ORAL
     Route: 048
     Dates: start: 20050915, end: 20050919
  2. DEPAKOTE ER [Suspect]
     Indication: CONVULSION
     Dosage: 1000 MG, 1 IN 1 D, PER ORAL
     Route: 048
     Dates: start: 20051005
  3. DEPAKOTE [Suspect]
     Indication: CONVULSION
     Dosage: 1000 MG, 1 IN 1 D, PER ORAL
     Route: 048
     Dates: start: 20050919, end: 20051005
  4. DEPAKOTE [Suspect]
     Indication: CONVULSION
     Dosage: 1000 MG, 1 IN 1 D, PER ORAL
     Route: 048
     Dates: start: 20051005
  5. QUETIAPINE FUMARATE [Concomitant]
  6. CALCIUM GLUCONATE [Concomitant]
  7. VITAMINS [Concomitant]
  8. ESOMEPRAZOLE [Concomitant]

REACTIONS (4)
  - BRONCHITIS [None]
  - DROOLING [None]
  - LETHARGY [None]
  - PNEUMONIA [None]
